FAERS Safety Report 17755960 (Version 1)
Quarter: 2020Q2

REPORT INFORMATION
  Report Type: Spontaneous
  Country: US (occurrence: US)
  Receive Date: 20200507
  Receipt Date: 20200507
  Transmission Date: 20200714
  Serious: Yes (Hospitalization, Other)
  Sender: FDA-Public Use
  Company Number: US-AMGEN-USASP2020070818

PATIENT
  Age: 70 Year
  Sex: Female

DRUGS (2)
  1. PROLIA [Suspect]
     Active Substance: DENOSUMAB
     Indication: OSTEOPOROSIS POSTMENOPAUSAL
     Dosage: 60 MILLIGRAM, Q6MO
     Route: 065
  2. PREDNISONE. [Concomitant]
     Active Substance: PREDNISONE
     Indication: MULTIPLE SCLEROSIS
     Dosage: 15 MILLIGRAM, QOD

REACTIONS (9)
  - Back pain [Not Recovered/Not Resolved]
  - Artificial crown procedure [Unknown]
  - Intervertebral disc protrusion [Unknown]
  - Memory impairment [Unknown]
  - Pain in jaw [Recovered/Resolved]
  - Cerebrovascular accident [Unknown]
  - Road traffic accident [Unknown]
  - Vertigo [Unknown]
  - Incontinence [Unknown]

NARRATIVE: CASE EVENT DATE: 201810
